FAERS Safety Report 12418474 (Version 1)
Quarter: 2016Q2

REPORT INFORMATION
  Report Type: Spontaneous
  Country: US (occurrence: US)
  Receive Date: 20160531
  Receipt Date: 20160531
  Transmission Date: 20160815
  Serious: No
  Sender: FDA-Public Use
  Company Number: US-TEVA-650785USA

PATIENT
  Age: 77 Year
  Sex: Male
  Weight: 86.26 kg

DRUGS (1)
  1. HYDRALAZINE [Suspect]
     Active Substance: HYDRALAZINE HYDROCHLORIDE
     Indication: HYPERTENSION
     Dosage: 25MG+50MG = 75MG DOSE
     Dates: start: 201511, end: 201601

REACTIONS (9)
  - Heart rate increased [Recovered/Resolved]
  - Fatigue [Recovered/Resolved]
  - Feeling drunk [Recovered/Resolved]
  - Asthenopia [Recovered/Resolved]
  - Hypertension [Recovered/Resolved]
  - Palpitations [Recovered/Resolved]
  - Somnolence [Recovered/Resolved]
  - Ear pain [Recovered/Resolved]
  - Asthenia [Recovered/Resolved]

NARRATIVE: CASE EVENT DATE: 201511
